FAERS Safety Report 20474918 (Version 1)
Quarter: 2022Q1

REPORT INFORMATION
  Report Type: Spontaneous
  Country: US (occurrence: None)
  Receive Date: 20220214
  Receipt Date: 20220214
  Transmission Date: 20220423
  Serious: No
  Sender: FDA-Public Use
  Company Number: None

PATIENT
  Age: 50 Year
  Sex: Male

DRUGS (1)
  1. HUMIRA [Suspect]
     Active Substance: ADALIMUMAB
     Dosage: OTHER QUANTITY : 1 INJECTION;?OTHER FREQUENCY : OTHER;?
     Route: 058
     Dates: start: 20220214

REACTIONS (2)
  - Wrong technique in product usage process [None]
  - Product administration error [None]

NARRATIVE: CASE EVENT DATE: 20220214
